FAERS Safety Report 8543347-X (Version None)
Quarter: 2012Q3

REPORT INFORMATION
  Report Type: 
  Country: None (occurrence: None)
  Receive Date: 20120716
  Receipt Date: 20120704
  Transmission Date: 20120928
  Serious: Yes (Other)
  Sender: FDA-Public Use
  Company Number: DSA_58412_2012

PATIENT
  Age: 64 Year
  Sex: Male

DRUGS (3)
  1. CISPLATIN [Suspect]
     Indication: OESOPHAGEAL CANCER METASTATIC
     Dosage: (DF)
  2. FLUOROURACIL [Suspect]
     Indication: OESOPHAGEAL CANCER METASTATIC
     Dosage: (DF)
  3. DOCETAXEL [Suspect]
     Indication: OESOPHAGEAL CANCER METASTATIC
     Dosage: (DF)

REACTIONS (7)
  - DYSGEUSIA [None]
  - VOMITING [None]
  - PNEUMOMEDIASTINUM [None]
  - NAUSEA [None]
  - NEUTROPHIL COUNT DECREASED [None]
  - ALOPECIA [None]
  - OESOPHAGEAL PERFORATION [None]
